FAERS Safety Report 6622187-2 (Version None)
Quarter: 2010Q1

REPORT INFORMATION
  Report Type: 
  Country: None (occurrence: None)
  Receive Date: 20100309
  Receipt Date: 20100223
  Transmission Date: 20100710
  Serious: Yes (Hospitalization)
  Sender: FDA-Public Use
  Company Number: FR-MYLANLABS-2010S1002958

PATIENT
  Age: 54 Year
  Sex: Male

DRUGS (3)
  1. METHOTREXATE [Suspect]
     Indication: PSORIASIS
     Route: 048
     Dates: start: 20040701, end: 20070701
  2. FOLIC ACID [Concomitant]
     Indication: PSORIASIS
     Route: 065
     Dates: start: 20040701
  3. KETOPROFEN [Concomitant]
     Indication: PSORIASIS
     Route: 065
     Dates: start: 20040701

REACTIONS (2)
  - HERNIAL EVENTRATION [None]
  - SKIN ULCER [None]
